FAERS Safety Report 20850772 (Version 1)
Quarter: 2022Q2

REPORT INFORMATION
  Report Type: Spontaneous
  Country: CN (occurrence: None)
  Receive Date: 20220519
  Receipt Date: 20220519
  Transmission Date: 20220721
  Serious: Yes (Hospitalization)
  Sender: FDA-Public Use
  Company Number: 2022A186718

PATIENT
  Age: 21550 Day
  Sex: Female
  Weight: 50 kg

DRUGS (2)
  1. SODIUM ZIRCONIUM CYCLOSILICATE [Suspect]
     Active Substance: SODIUM ZIRCONIUM CYCLOSILICATE
     Indication: Hyperkalaemia
     Route: 048
     Dates: start: 20220501, end: 20220507
  2. CHARCOAL [Concomitant]
     Active Substance: ACTIVATED CHARCOAL
     Indication: Blood creatinine increased
     Route: 048
     Dates: start: 20220501, end: 20220505

REACTIONS (2)
  - Blood potassium abnormal [Recovering/Resolving]
  - Asthenia [Unknown]

NARRATIVE: CASE EVENT DATE: 20220507
